FAERS Safety Report 9348444 (Version 2)
Quarter: 2013Q3

REPORT INFORMATION
  Report Type: Spontaneous
  Country: FR (occurrence: FR)
  Receive Date: 20130614
  Receipt Date: 20130813
  Transmission Date: 20140515
  Serious: Yes (Hospitalization, Other)
  Sender: FDA-Public Use
  Company Number: FR-ASTELLAS-2013EU005009

PATIENT
  Age: 82 Year
  Sex: Female

DRUGS (2)
  1. VESICARE [Suspect]
     Indication: URINARY TRACT DISORDER
     Dosage: 1 DF, UNKNOWN/D
     Route: 048
  2. DOLENIO [Suspect]
     Dosage: UNK
     Route: 065

REACTIONS (4)
  - Acute pulmonary oedema [Unknown]
  - Atrial fibrillation [Recovering/Resolving]
  - Bundle branch block left [Unknown]
  - International normalised ratio increased [Unknown]
